FAERS Safety Report 15046213 (Version 1)
Quarter: 2018Q2

REPORT INFORMATION
  Report Type: Spontaneous
  Country: KR (occurrence: KR)
  Receive Date: 20180621
  Receipt Date: 20180621
  Transmission Date: 20180711
  Serious: Yes (Other)
  Sender: FDA-Public Use
  Company Number: PHHY2018KR022287

PATIENT
  Age: 44 Year
  Sex: Male

DRUGS (3)
  1. FIMASARTAN [Concomitant]
     Active Substance: FIMASARTAN
     Indication: HYPERTENSION
     Dosage: 60 MG, QD
     Route: 065
  2. AMLODIPINE [Concomitant]
     Active Substance: AMLODIPINE BESYLATE
     Indication: HYPERTENSION
     Dosage: 5 MG, QD
     Route: 065
  3. METHYLPREDNISOLONE. [Suspect]
     Active Substance: METHYLPREDNISOLONE
     Indication: FACIAL PARALYSIS
     Dosage: 60 MG, QD
     Route: 065

REACTIONS (4)
  - Vertebral artery stenosis [Recovering/Resolving]
  - Carotid artery stenosis [Recovering/Resolving]
  - Carotid artery dissection [Recovering/Resolving]
  - Arterial intramural haematoma [Recovering/Resolving]
